FAERS Safety Report 15674928 (Version 1)
Quarter: 2018Q4

REPORT INFORMATION
  Report Type: Spontaneous
  Country: GB (occurrence: GB)
  Receive Date: 20181130
  Receipt Date: 20181130
  Transmission Date: 20190205
  Serious: Yes (Other)
  Sender: FDA-Public Use
  Company Number: GB-AUROBINDO-AUR-APL-2018-057038

PATIENT
  Age: 21 Year
  Sex: Female
  Weight: 57.15 kg

DRUGS (1)
  1. CEFALEXIN [Suspect]
     Active Substance: CEPHALEXIN
     Indication: EAR INFECTION
     Dosage: UNK
     Route: 048
     Dates: start: 20181104, end: 20181104

REACTIONS (6)
  - Anxiety [Recovered/Resolved with Sequelae]
  - Visual impairment [Unknown]
  - Dyspnoea [Unknown]
  - Dizziness [Unknown]
  - Panic reaction [Unknown]
  - Vomiting [Unknown]

NARRATIVE: CASE EVENT DATE: 20181104
